FAERS Safety Report 9578024 (Version 1)
Quarter: 2013Q4

REPORT INFORMATION
  Report Type: Spontaneous
  Country: US (occurrence: US)
  Receive Date: 20131001
  Receipt Date: 20131001
  Transmission Date: 20140711
  Serious: Yes (Hospitalization)
  Sender: FDA-Public Use
  Company Number: US-AMGEN-USASP2013010707

PATIENT
  Age: 64 Year
  Sex: Female
  Weight: 107.94 kg

DRUGS (16)
  1. ENBREL [Suspect]
     Indication: PSORIATIC ARTHROPATHY
     Dosage: 50 MG/ML, QWK
     Route: 058
  2. METFORMIN [Concomitant]
     Dosage: 500 MG, UNK
  3. INDERAL [Concomitant]
     Dosage: 10 MG, UNK
  4. NEURONTIN [Concomitant]
     Dosage: 100 MG, UNK
  5. CELEBREX [Concomitant]
     Dosage: 100 MG, UNK
  6. HUMALOG MIX [Concomitant]
     Dosage: 50/50
  7. LANTUS [Concomitant]
     Dosage: 100/ML
  8. PERCOCET                           /00446701/ [Concomitant]
     Dosage: 5 - 325 MG
  9. VITAMIN D                          /00107901/ [Concomitant]
     Dosage: 1000 UNIT, UNK
  10. DEMADEX                            /01036501/ [Concomitant]
     Dosage: 20 MG, UNK
  11. KLOR-CON M15 [Concomitant]
     Dosage: UNK
  12. PRILOSEC                           /00661201/ [Concomitant]
     Dosage: 10 MG, UNK
  13. SYMBICORT [Concomitant]
     Dosage: 80 TO 4.5
  14. HYDROXYCHLOROQUINE [Concomitant]
     Dosage: 200 MG, UNK
  15. ZEGERID                            /00661201/ [Concomitant]
     Dosage: 20 TO 1100
  16. TYLENOL                            /00020001/ [Concomitant]
     Dosage: 325 MG, UNK

REACTIONS (3)
  - Lymphadenopathy [Recovering/Resolving]
  - Cellulitis [Recovering/Resolving]
  - Anaemia [Recovering/Resolving]
